APPROVED DRUG PRODUCT: BRETYLIUM TOSYLATE
Active Ingredient: BRETYLIUM TOSYLATE
Strength: 100MG/ML
Dosage Form/Route: INJECTABLE;INJECTION
Application: A071298 | Product #001
Applicant: ABRAXIS PHARMACEUTICAL PRODUCTS
Approved: Feb 13, 1987 | RLD: No | RS: No | Type: DISCN